FAERS Safety Report 6395022-8 (Version None)
Quarter: 2009Q4

REPORT INFORMATION
  Report Type: 
  Country: None (occurrence: None)
  Receive Date: 20091009
  Receipt Date: 20090929
  Transmission Date: 20100525
  Serious: Yes (Hospitalization, Other)
  Sender: FDA-Public Use
  Company Number: GB-PFIZER INC-2009272098

PATIENT
  Age: 45 Year

DRUGS (9)
  1. PHENYTOIN AND PHENYTOIN SODIUM [Suspect]
  2. CARBOPLATIN [Suspect]
     Indication: GLIOBLASTOMA MULTIFORME
     Dosage: UNK MG/KG, EVERY 3 WEEKS
     Dates: start: 20090721
  3. AVASTIN [Suspect]
     Indication: GLIOBLASTOMA MULTIFORME
     Dosage: 15 MG/KG, EVERY 3 WEEKS
     Dates: start: 20090721
  4. DEXAMETHASONE [Concomitant]
     Dosage: 6 MG, 1X/DAY
  5. METOCLOPRAMIDE [Concomitant]
     Dosage: 10 MG, 3 AS NEEDED
  6. NEULASTA [Concomitant]
     Dosage: 6 MG, UNK
  7. ONDANSETRON [Concomitant]
     Dosage: 8 MG, 2X/DAY
  8. VALPROATE SODIUM [Concomitant]
  9. WARFARIN [Concomitant]

REACTIONS (7)
  - BODY TEMPERATURE INCREASED [None]
  - CONFUSIONAL STATE [None]
  - CYTOKINE STORM [None]
  - DEEP VEIN THROMBOSIS [None]
  - DELIRIUM [None]
  - IMPETIGO [None]
  - PETECHIAE [None]
